FAERS Safety Report 9284348 (Version 1)
Quarter: 2013Q2

REPORT INFORMATION
  Report Type: Spontaneous
  Country: US (occurrence: US)
  Receive Date: 20130510
  Receipt Date: 20130510
  Transmission Date: 20140414
  Serious: Yes (Other)
  Sender: FDA-Public Use
  Company Number: US-UCBSA-085221

PATIENT
  Sex: Female

DRUGS (2)
  1. VIMPAT [Suspect]
     Dosage: UNKNOWN DOSE
  2. TOPAMAX [Concomitant]
     Dosage: UNKNOWN DOSE

REACTIONS (1)
  - Visual impairment [Unknown]
